FAERS Safety Report 7668583 (Version 3)
Quarter: 2013Q3

REPORT INFORMATION
  Report Type: Spontaneous
  Country: AU (occurrence: AU)
  Receive Date: 20101115
  Receipt Date: 20130719
  Transmission Date: 20140515
  Serious: Yes (Life-Threatening, Hospitalization, Other)
  Sender: FDA-Public Use
  Company Number: AU-ROCHE-740140

PATIENT
  Age: 73 Year
  Sex: Male
  Weight: 71 kg

DRUGS (5)
  1. ACTEMRA [Suspect]
     Indication: RHEUMATOID ARTHRITIS
     Route: 042
     Dates: start: 20091223, end: 20101015
  2. WARFARIN [Suspect]
     Indication: AORTIC VALVE REPLACEMENT
     Dosage: EVERYDAY
     Route: 048
  3. THYROXINE [Concomitant]
     Indication: HYPOTHYROIDISM
     Dosage: DAILY
     Route: 048
  4. MIRTAZAPINE [Concomitant]
     Indication: DEPRESSION
     Route: 048
  5. METHOTREXATE [Concomitant]
     Route: 048
     Dates: start: 20090221, end: 20101015

REACTIONS (3)
  - Cerebral haemorrhage [Not Recovered/Not Resolved]
  - Hemiplegia [Unknown]
  - Cerebrovascular accident [Unknown]
